FAERS Safety Report 8571529-X (Version None)
Quarter: 2012Q3

REPORT INFORMATION
  Report Type: 
  Country: None (occurrence: None)
  Receive Date: 20120806
  Receipt Date: 20120727
  Transmission Date: 20120928
  Serious: Yes (Hospitalization, Other)
  Sender: FDA-Public Use
  Company Number: PHHY2012JP058483

PATIENT
  Sex: Female

DRUGS (9)
  1. EXELON [Suspect]
     Dosage: 9 MG, DAILY
     Route: 062
     Dates: start: 20120101
  2. TEGRETOL [Suspect]
     Indication: RESTLESSNESS
     Dosage: 100 MG, DAILY
     Route: 048
     Dates: start: 20120405, end: 20120417
  3. TEGRETOL [Suspect]
     Dosage: 200 MG, UNK
     Route: 048
     Dates: start: 20120418, end: 20120528
  4. EXELON [Suspect]
     Indication: DEMENTIA ALZHEIMER'S TYPE
     Dosage: 4.5 MG, DAILY
     Route: 062
     Dates: start: 20120114
  5. CALCIUM ANTAGONISTS [Concomitant]
  6. EXELON [Suspect]
     Dosage: 18 MG, UNK
     Route: 062
     Dates: start: 20120418, end: 20120511
  7. YOKUKAN-SAN [Concomitant]
     Dosage: 3 DF, DAILY
     Route: 048
  8. EXELON [Suspect]
     Dosage: 13.5 MG, DAILY
     Route: 062
     Dates: start: 20120101
  9. ATELEC [Concomitant]
     Indication: HYPERTENSION
     Dosage: 10 MG, UNK
     Route: 048
     Dates: start: 20120210, end: 20120720

REACTIONS (17)
  - GENERALISED ERYTHEMA [None]
  - PERIPHERAL COLDNESS [None]
  - DIARRHOEA [None]
  - TOXIC EPIDERMAL NECROLYSIS [None]
  - BLOOD PRESSURE INCREASED [None]
  - OEDEMA PERIPHERAL [None]
  - SKIN OEDEMA [None]
  - RASH [None]
  - AGITATION [None]
  - PRURITUS [None]
  - PAPULE [None]
  - DRUG ERUPTION [None]
  - APPLICATION SITE RASH [None]
  - BLOOD GLUCOSE INCREASED [None]
  - RESTLESSNESS [None]
  - PYREXIA [None]
  - SKIN DISCOLOURATION [None]
